FAERS Safety Report 16016211 (Version 1)
Quarter: 2019Q1

REPORT INFORMATION
  Report Type: Report from Study
  Country: IT (occurrence: IT)
  Receive Date: 20190228
  Receipt Date: 20190228
  Transmission Date: 20190418
  Serious: Yes (Other)
  Sender: FDA-Public Use
  Company Number: IT-TEVA-2019-IT-1017551

PATIENT
  Age: 46 Year
  Sex: Female

DRUGS (9)
  1. WELLBUTRIN [Suspect]
     Active Substance: BUPROPION HYDROCHLORIDE
     Indication: OVERDOSE
     Dosage: 450 MILLIGRAM DAILY;
     Route: 048
     Dates: start: 20181118, end: 20181202
  2. DELORAZEPAM [Concomitant]
     Active Substance: DELORAZEPAM
  3. FLUOXETINE [Suspect]
     Active Substance: FLUOXETINE HYDROCHLORIDE
     Indication: OVERDOSE
     Dosage: 80 MILLIGRAM DAILY;
     Route: 048
     Dates: start: 20181118, end: 20181202
  4. EUTIROX 75 MICROGRAMMI COMPRESSE [Concomitant]
     Active Substance: LEVOTHYROXINE SODIUM
  5. LENDORMIN 0,25 MG COMPRESSE [Concomitant]
  6. TRITTICO 150 MG COMPRESSE A RILASCIO PROLUNGATO [Suspect]
     Active Substance: TRAZODONE HYDROCHLORIDE
     Indication: OVERDOSE
     Dosage: 450 MILLIGRAM DAILY;
     Route: 048
     Dates: start: 20181118, end: 20181202
  7. NEURONTIN 300 MG CAPSULE RIGIDE [Concomitant]
  8. METFORMIN [Suspect]
     Active Substance: METFORMIN HYDROCHLORIDE
     Indication: OVERDOSE
     Dosage: 1 GRAM DAILY;
     Route: 048
     Dates: start: 20181118, end: 20181129
  9. TRILAFON [Concomitant]
     Active Substance: PERPHENAZINE

REACTIONS (2)
  - Malaise [Not Recovered/Not Resolved]
  - Hallucination, visual [Not Recovered/Not Resolved]

NARRATIVE: CASE EVENT DATE: 20181201
